FAERS Safety Report 8251289-2 (Version None)
Quarter: 2012Q2

REPORT INFORMATION
  Report Type: 
  Country: None (occurrence: None)
  Receive Date: 20120402
  Receipt Date: 20120323
  Transmission Date: 20120825
  Serious: Yes (Other)
  Sender: FDA-Public Use
  Company Number: US-SHIRE-ALL1-2012-01578

PATIENT
  Sex: Male

DRUGS (2)
  1. CARBATROL [Suspect]
     Dosage: 400 MG, DAILY DOSE
     Route: 048
  2. CARBATROL [Suspect]
     Indication: PRODUCT USED FOR UNKNOWN INDICATION
     Dosage: 900 MG, DAILY DOSE
     Route: 048

REACTIONS (1)
  - TOXICITY TO VARIOUS AGENTS [None]
